FAERS Safety Report 5376798-5 (Version None)
Quarter: 2007Q3

REPORT INFORMATION
  Report Type: 
  Country: None (occurrence: None)
  Receive Date: 20070703
  Receipt Date: 20070621
  Transmission Date: 20080115
  Serious: Yes (Other)
  Sender: FDA-Public Use
  Company Number: PHNU2006DE02983

PATIENT
  Age: 71 Year
  Sex: Male
  Weight: 98 kg

DRUGS (3)
  1. ZOMETA [Suspect]
     Indication: METASTASES TO BONE
     Dosage: 4 MG, QMO
     Dates: start: 20060717
  2. TRENANTONE [Concomitant]
     Indication: PROSTATE CANCER
     Route: 065
     Dates: start: 20060601
  3. OLMESARTAN MEDOXOMIL [Concomitant]
     Indication: HYPERTENSION
     Dosage: 20 MG/DAY
     Route: 048

REACTIONS (17)
  - ABDOMINAL PAIN LOWER [None]
  - ACUTE PHASE REACTION [None]
  - ASTHENIA [None]
  - BACK PAIN [None]
  - BONE PAIN [None]
  - GENERAL PHYSICAL CONDITION ABNORMAL [None]
  - GOITRE [None]
  - GROIN PAIN [None]
  - HYPOTENSION [None]
  - INFLUENZA LIKE ILLNESS [None]
  - PYREXIA [None]
  - RENAL COLIC [None]
  - RENAL DISORDER [None]
  - TESTICULAR PAIN [None]
  - THYROID GLAND SCAN ABNORMAL [None]
  - THYROID NEOPLASM [None]
  - THYROID OPERATION [None]
